FAERS Safety Report 12729011 (Version 1)
Quarter: 2016Q3

REPORT INFORMATION
  Report Type: Spontaneous
  Country: US (occurrence: US)
  Receive Date: 20160909
  Receipt Date: 20160909
  Transmission Date: 20161109
  Serious: No
  Sender: FDA-Public Use
  Company Number: US-WOCKHARDT USA, LLC-1057213

PATIENT
  Age: 70 Year
  Sex: Female

DRUGS (1)
  1. LEVOFLOXACIN. [Suspect]
     Active Substance: LEVOFLOXACIN
     Indication: SINUSITIS
     Dates: start: 20141221, end: 20141230

REACTIONS (4)
  - Pain in extremity [None]
  - Joint swelling [None]
  - Musculoskeletal pain [Recovered/Resolved]
  - Musculoskeletal pain [None]

NARRATIVE: CASE EVENT DATE: 201412
